FAERS Safety Report 6093801-8 (Version None)
Quarter: 2009Q1

REPORT INFORMATION
  Report Type: 
  Country: None (occurrence: None)
  Receive Date: 20090222
  Receipt Date: 20090222
  Transmission Date: 20090719
  Serious: No
  Sender: FDA-Public Use
  Company Number: None

PATIENT
  Age: 64 Year
  Sex: Female
  Weight: 52.6173 kg

DRUGS (1)
  1. AZASITE [Suspect]
     Indication: BACTERIAL INFECTION
     Dosage: ONE EYEDROP DAILY OPHTHALMIC
     Route: 047
     Dates: start: 20090213, end: 20090219

REACTIONS (1)
  - RASH PRURITIC [None]
